FAERS Safety Report 21898447 (Version 1)
Quarter: 2023Q1

REPORT INFORMATION
  Report Type: Spontaneous
  Country: CN (occurrence: CN)
  Receive Date: 20230123
  Receipt Date: 20230123
  Transmission Date: 20230417
  Serious: Yes (Other)
  Sender: FDA-Public Use
  Company Number: CN-MYLANLABS-2023M1006185

PATIENT
  Sex: Female
  Weight: 52 kg

DRUGS (2)
  1. CELEBREX [Suspect]
     Active Substance: CELECOXIB
     Indication: Pain
     Dosage: 200 MILLIGRAM, QD
     Route: 048
     Dates: start: 20230102, end: 20230102
  2. CELEBREX [Suspect]
     Active Substance: CELECOXIB
     Indication: Analgesic therapy

REACTIONS (1)
  - Rubella [Recovered/Resolved]

NARRATIVE: CASE EVENT DATE: 20230102
